FAERS Safety Report 5500376-8 (Version None)
Quarter: 2007Q4

REPORT INFORMATION
  Report Type: 
  Country: None (occurrence: None)
  Receive Date: 20071025
  Receipt Date: 20071025
  Transmission Date: 20080405
  Serious: No
  Sender: FDA-Public Use
  Company Number: None

PATIENT
  Sex: Male
  Weight: 105.9 kg

DRUGS (4)
  1. FLUOROURACIL [Suspect]
     Dosage: 20000 MG
     Dates: end: 20071017
  2. BEVACIZUMAB (RHUMAB VEGF) [Suspect]
     Dosage: 2100 MG
     Dates: end: 20071015
  3. CAMPTOSAR [Suspect]
     Dosage: 1360 MG
     Dates: end: 20071015
  4. LEUCOVORIN CALCIUM [Suspect]
     Dosage: 3640 MG
     Dates: end: 20071015

REACTIONS (1)
  - PULMONARY EMBOLISM [None]
